FAERS Safety Report 10081250 (Version 1)
Quarter: 2014Q2

REPORT INFORMATION
  Report Type: Spontaneous
  Country: GB (occurrence: GB)
  Receive Date: 20140416
  Receipt Date: 20140416
  Transmission Date: 20141212
  Serious: Yes (Other)
  Sender: FDA-Public Use
  Company Number: GB-TEVA-474889ISR

PATIENT
  Sex: Female

DRUGS (3)
  1. OXALIPLATIN [Suspect]
     Indication: RECTOSIGMOID CANCER METASTATIC
     Route: 065
  2. FLUOROURACIL [Suspect]
     Indication: RECTOSIGMOID CANCER METASTATIC
     Route: 065
  3. YTTRIUM-90 [Suspect]
     Indication: RECTOSIGMOID CANCER METASTATIC
     Dosage: 0.5 GBQ TO THE RIGHT SIDE OF THE LIVER
     Route: 050

REACTIONS (1)
  - Venoocclusive disease [Unknown]
